FAERS Safety Report 9753249 (Version 3)
Quarter: 2015Q3

REPORT INFORMATION
  Report Type: Spontaneous
  Country: US (occurrence: US)
  Receive Date: 20131213
  Receipt Date: 20150805
  Transmission Date: 20151125
  Serious: No
  Sender: FDA-Public Use
  Company Number: US-GILEAD-2010-0027256

PATIENT
  Age: 32 Year
  Sex: Female
  Weight: 108.86 kg

DRUGS (24)
  1. COREG [Concomitant]
     Active Substance: CARVEDILOL
  2. VITAMIN D [Concomitant]
     Active Substance: CHOLECALCIFEROL
  3. LASIX [Concomitant]
     Active Substance: FUROSEMIDE
  4. MECLIZINE [Concomitant]
     Active Substance: MECLIZINE\MECLIZINE HYDROCHLORIDE
  5. ZOLOFT [Concomitant]
     Active Substance: SERTRALINE HYDROCHLORIDE
  6. POTASSIUM CL [Concomitant]
     Active Substance: POTASSIUM CHLORIDE
  7. CLOMIPRAMINE [Concomitant]
     Active Substance: CLOMIPRAMINE
  8. PLAQUENIL [Concomitant]
     Active Substance: HYDROXYCHLOROQUINE SULFATE
  9. LETAIRIS [Suspect]
     Active Substance: AMBRISENTAN
     Indication: PULMONARY ARTERIAL HYPERTENSION
     Route: 048
     Dates: start: 20070809
  10. COUMADIN [Concomitant]
     Active Substance: WARFARIN SODIUM
  11. FERROUS SULF [Concomitant]
  12. PREDNISONE. [Concomitant]
     Active Substance: PREDNISONE
  13. ASPIRIN. [Concomitant]
     Active Substance: ASPIRIN
  14. DIGOXIN. [Concomitant]
     Active Substance: DIGOXIN
  15. SYNTHROID [Concomitant]
     Active Substance: LEVOTHYROXINE SODIUM
  16. OXYGEN. [Concomitant]
     Active Substance: OXYGEN
  17. LOMOTIL [Concomitant]
     Active Substance: ATROPINE SULFATE\DIPHENOXYLATE HYDROCHLORIDE
  18. ALPRAZOLAM. [Concomitant]
     Active Substance: ALPRAZOLAM
  19. REMODULIN [Concomitant]
     Active Substance: TREPROSTINIL
  20. SIMVASTATIN. [Concomitant]
     Active Substance: SIMVASTATIN
  21. CALCIUM +D [Concomitant]
     Active Substance: CALCIUM\VITAMIN D
  22. TYLENOL EX-STR [Concomitant]
  23. COZAAR [Concomitant]
     Active Substance: LOSARTAN POTASSIUM
  24. CORTISPORIN [Concomitant]
     Active Substance: BACITRACIN ZINC\HYDROCORTISONE\NEOMYCIN SULFATE\POLYMYXIN B SULFATE

REACTIONS (2)
  - Anxiety [Unknown]
  - Chest pain [Unknown]
